FAERS Safety Report 18243109 (Version 2)
Quarter: 2020Q3

REPORT INFORMATION
  Report Type: Spontaneous
  Country: AU (occurrence: AU)
  Receive Date: 20200908
  Receipt Date: 20200917
  Transmission Date: 20201103
  Serious: Yes (Death, Hospitalization, Other)
  Sender: FDA-Public Use
  Company Number: AU-PFIZER INC-2019359233

PATIENT
  Age: 48 Year
  Sex: Male
  Weight: 78 kg

DRUGS (14)
  1. ENOXAPARINE [Concomitant]
     Active Substance: ENOXAPARIN
     Indication: PORTAL VEIN THROMBOSIS
     Dosage: 40 MG, 2X/DAY
     Dates: start: 2015
  2. ENOXAPARINE [Concomitant]
     Active Substance: ENOXAPARIN
     Indication: PORTAL VEIN CAVERNOUS TRANSFORMATION
  3. VEDOLIZUMAB [Concomitant]
     Active Substance: VEDOLIZUMAB
     Dosage: UNK, EVERY 4 WEEKS
     Dates: start: 2019
  4. VEDOLIZUMAB [Concomitant]
     Active Substance: VEDOLIZUMAB
     Dosage: UNK, EVERY 8 WEEKS
     Dates: start: 201910, end: 202006
  5. FUROSEMIDE. [Concomitant]
     Active Substance: FUROSEMIDE
     Indication: ASCITES
     Dosage: 40 MG, DAILY
     Dates: start: 2017
  6. TOFACITINIB CITRATE [Suspect]
     Active Substance: TOFACITINIB CITRATE
     Dosage: 5 MG, 1X/DAY
     Route: 048
     Dates: start: 202006, end: 202008
  7. MEZAVANT [Concomitant]
     Active Substance: MESALAMINE
     Dosage: 48 G, DAILY
     Route: 048
     Dates: start: 2014
  8. TOFACITINIB CITRATE [Suspect]
     Active Substance: TOFACITINIB CITRATE
     Dosage: 5 MG, 2X/DAY
     Route: 048
     Dates: start: 202004
  9. TOFACITINIB CITRATE [Suspect]
     Active Substance: TOFACITINIB CITRATE
     Indication: COLITIS ULCERATIVE
     Dosage: 5 MG, 2X/DAY
     Route: 048
     Dates: start: 201910
  10. USTEKINUMAB [Concomitant]
     Active Substance: USTEKINUMAB
     Indication: COLITIS ULCERATIVE
     Dosage: 390 MG, 1X/DAY
     Route: 042
     Dates: start: 202007
  11. VEDOLIZUMAB [Concomitant]
     Active Substance: VEDOLIZUMAB
     Indication: COLITIS ULCERATIVE
     Dosage: UNK
     Dates: start: 2017
  12. 5?ASA [Concomitant]
     Active Substance: MESALAMINE
     Indication: COLITIS ULCERATIVE
     Dosage: 4 G, DAILY
  13. TOFACITINIB CITRATE [Suspect]
     Active Substance: TOFACITINIB CITRATE
     Dosage: 5 MG, 1X/DAY
     Route: 048
     Dates: start: 201912
  14. SPIRONOLACTONE. [Concomitant]
     Active Substance: SPIRONOLACTONE
     Indication: ASCITES
     Dosage: 100 MG, DAILY
     Dates: start: 2017

REACTIONS (12)
  - Abdominal pain [Unknown]
  - Asthenia [Unknown]
  - Condition aggravated [Unknown]
  - Lymphoma [Unknown]
  - Tumour lysis syndrome [Fatal]
  - Renal failure [Unknown]
  - Ascites [Unknown]
  - Hepatorenal syndrome [Unknown]
  - Ileus [Unknown]
  - Liver disorder [Unknown]
  - Death [Fatal]
  - Device occlusion [Unknown]

NARRATIVE: CASE EVENT DATE: 2020
